FAERS Safety Report 18623518 (Version 6)
Quarter: 2021Q3

REPORT INFORMATION
  Report Type: Spontaneous
  Country: US (occurrence: US)
  Receive Date: 20201216
  Receipt Date: 20210825
  Transmission Date: 20211014
  Serious: Yes (Other)
  Sender: FDA-Public Use
  Company Number: US-PFIZER INC-2020469224

PATIENT
  Age: 70 Year
  Sex: Female

DRUGS (1)
  1. LYRICA [Suspect]
     Active Substance: PREGABALIN
     Indication: HERPES ZOSTER
     Dosage: 75 MG, 1 CAPSULE TWICE A DAY
     Route: 048

REACTIONS (6)
  - Pain [Unknown]
  - Dementia Alzheimer^s type [Unknown]
  - Visual impairment [Unknown]
  - Confusional state [Unknown]
  - Erythema [Unknown]
  - Diabetes mellitus [Unknown]
